FAERS Safety Report 6687010-9 (Version None)
Quarter: 2010Q2

REPORT INFORMATION
  Report Type: 
  Country: None (occurrence: None)
  Receive Date: 20100419
  Receipt Date: 20100407
  Transmission Date: 20101027
  Serious: Yes (Other)
  Sender: FDA-Public Use
  Company Number: GB-PFIZER INC-2010044353

PATIENT
  Sex: Female

DRUGS (7)
  1. GABAPENTIN [Suspect]
     Indication: PAIN
     Dosage: UNK
  2. LYRICA [Suspect]
     Indication: PAIN
     Dosage: UNK
  3. TEGRETOL [Suspect]
     Indication: PAIN
  4. DIAZEPAM [Suspect]
     Indication: PAIN
  5. LIDOCAINE [Suspect]
     Indication: PAIN
  6. VALPROATE SODIUM [Suspect]
     Indication: PAIN
  7. LEVOTHYROXINE SODIUM [Suspect]
     Indication: PAIN
     Dosage: 100 MG, UNK

REACTIONS (9)
  - ALOPECIA [None]
  - CONSTIPATION [None]
  - DRUG INEFFECTIVE [None]
  - DRUG LEVEL DECREASED [None]
  - FATIGUE [None]
  - LYMPHOEDEMA [None]
  - MEMORY IMPAIRMENT [None]
  - MUSCLE CONTRACTIONS INVOLUNTARY [None]
  - VISUAL ACUITY REDUCED [None]
